FAERS Safety Report 20406791 (Version 1)
Quarter: 2022Q1

REPORT INFORMATION
  Report Type: Spontaneous
  Country: US (occurrence: US)
  Receive Date: 20220131
  Receipt Date: 20220131
  Transmission Date: 20220423
  Serious: Yes (Hospitalization)
  Sender: FDA-Public Use
  Company Number: US-ELI_LILLY_AND_COMPANY-US202201008098

PATIENT
  Age: 62 Year
  Sex: Female

DRUGS (22)
  1. ZYPREXA [Suspect]
     Active Substance: OLANZAPINE
     Indication: Nausea
     Dosage: 5 MG, OTHER (AT BEDTIME ON NIGHT OF CHEMO AND 4 NIGHTS AFTER NAUSEA)
     Route: 048
     Dates: start: 20211029
  2. OXYCODONE [Suspect]
     Active Substance: OXYCODONE
     Indication: Pain
     Dosage: 10 MG, PRN (AS NEEDED EVERY 4 HOURS)
     Route: 048
     Dates: start: 20210709
  3. MS CONTIN [Suspect]
     Active Substance: MORPHINE SULFATE
     Indication: Pain
     Dosage: 15 MG, BID
     Route: 048
     Dates: start: 20211101
  4. VITAMIN B COMPLEX [Concomitant]
     Active Substance: CYANOCOBALAMIN\DEXPANTHENOL\NIACINAMIDE\PYRIDOXINE HYDROCHLORIDE\RIBOFLAVIN 5^-PHOSPHATE SODIUM\THIA
     Indication: Supplementation therapy
     Dosage: 1 DOSAGE FORM, DAILY
     Route: 048
     Dates: start: 20160705
  5. COENZYME Q10 [Concomitant]
     Active Substance: DIETARY SUPPLEMENT\UBIDECARENONE
     Indication: Supplementation therapy
     Dosage: 100 MG, DAILY
     Route: 048
     Dates: start: 20160705
  6. HYDROCHLOROTHIAZIDE\LOSARTAN [Concomitant]
     Active Substance: HYDROCHLOROTHIAZIDE\LOSARTAN
     Indication: Hypertension
     Dosage: 100 MG TO 25 MG, DAILY
     Route: 048
     Dates: start: 20160705
  7. METFORMIN [Concomitant]
     Active Substance: METFORMIN HYDROCHLORIDE
     Indication: Hyperglycaemia
     Dosage: 500 MG, DAILY
     Route: 048
     Dates: start: 20210101
  8. CITRATE OF MAGNESIUM [Concomitant]
     Active Substance: MAGNESIUM CITRATE
     Indication: Constipation
     Dosage: UNK, PRN
     Route: 048
     Dates: start: 20210601
  9. SENNA-S [DOCUSATE SODIUM;SENNA ALEXANDRINA] [Concomitant]
     Indication: Constipation
     Dosage: 8.6 MG TO 50 MG, BID
     Route: 048
     Dates: start: 20210601
  10. ZINC [Concomitant]
     Active Substance: ZINC
     Indication: Supplementation therapy
     Dosage: 50 MG, DAILY
     Route: 048
     Dates: start: 20210901
  11. VITAMIN C [Concomitant]
     Active Substance: ASCORBIC ACID
     Indication: Supplementation therapy
     Dosage: 100 MG, DAILY
     Route: 048
     Dates: start: 20210901
  12. VITAMIN D3 [Concomitant]
     Active Substance: CHOLECALCIFEROL
     Indication: Supplementation therapy
     Dosage: 25 UG, DAILY
     Route: 048
     Dates: start: 20210901
  13. BISACODYL [Concomitant]
     Active Substance: BISACODYL
     Indication: Constipation
     Dosage: 10 MG, DAILY
     Route: 054
     Dates: start: 20211011
  14. GABAPENTIN [Concomitant]
     Active Substance: GABAPENTIN
     Indication: Pain
     Dosage: 300 MG, DAILY
     Route: 048
     Dates: start: 20211112
  15. ONDANSETRON [Concomitant]
     Active Substance: ONDANSETRON
     Indication: Nausea
     Dosage: 8 MG, TID
     Route: 048
     Dates: start: 20211112
  16. LEVOFLOXACIN [Concomitant]
     Active Substance: LEVOFLOXACIN
     Indication: Prophylaxis
     Dosage: UNK UNK, UNKNOWN
     Route: 065
     Dates: start: 20211104, end: 20211113
  17. PROCHLORPERAZINE [Concomitant]
     Active Substance: PROCHLORPERAZINE
     Indication: Nausea
     Dosage: 10 MG, QID
     Route: 048
     Dates: start: 20210607
  18. COBAMAMIDE [Concomitant]
     Active Substance: COBAMAMIDE
     Indication: Supplementation therapy
     Dosage: 500 UG, DAILY
     Route: 048
     Dates: start: 20211119
  19. IRON [Concomitant]
     Active Substance: IRON
     Indication: Supplementation therapy
     Dosage: 325 MG, DAILY
     Route: 048
     Dates: start: 20211119
  20. LACTULOSE [Concomitant]
     Active Substance: LACTULOSE
     Indication: Constipation
     Dosage: 15 TO 30 ML AS NEEDED 2 TO 4 TIMES, DAILY
     Route: 065
     Dates: start: 20211115
  21. MIRTAZAPINE [Concomitant]
     Active Substance: MIRTAZAPINE
     Indication: Depression
     Dosage: 7.5 MG, DAILY
     Route: 048
     Dates: start: 20211129
  22. PEMBROLIZUMAB [Concomitant]
     Active Substance: PEMBROLIZUMAB
     Indication: Cholangiocarcinoma
     Dosage: 200 MG
     Route: 042
     Dates: start: 20211129

REACTIONS (13)
  - Confusional state [Recovered/Resolved]
  - Calcium ionised decreased [Unknown]
  - C-reactive protein increased [Unknown]
  - Protein total decreased [Unknown]
  - Blood calcium decreased [Unknown]
  - Blood albumin decreased [Unknown]
  - Red blood cell count decreased [Unknown]
  - Haemoglobin decreased [Unknown]
  - Haematocrit decreased [Unknown]
  - Bilirubin conjugated increased [Unknown]
  - Aspartate aminotransferase increased [Unknown]
  - Blood alkaline phosphatase increased [Unknown]
  - Off label use [Unknown]

NARRATIVE: CASE EVENT DATE: 20211029
